FAERS Safety Report 7884844-X (Version None)
Quarter: 2011Q4

REPORT INFORMATION
  Report Type: 
  Country: None (occurrence: None)
  Receive Date: 20111102
  Receipt Date: 20111025
  Transmission Date: 20120403
  Serious: Yes (Hospitalization)
  Sender: FDA-Public Use
  Company Number: PHEH2011US05261

PATIENT
  Age: 50 Year
  Sex: Female
  Weight: 49.887 kg

DRUGS (2)
  1. RECLAST [Suspect]
     Dosage: 5 MG/100 ML/YEAR
     Route: 042
     Dates: start: 20110920
  2. VITAMIN D [Concomitant]
     Dosage: 1000 MG, DAILY
     Dates: start: 20091107

REACTIONS (3)
  - ARTHRALGIA [None]
  - TREMOR [None]
  - PAIN [None]
